FAERS Safety Report 8007124-0 (Version None)
Quarter: 2011Q4

REPORT INFORMATION
  Report Type: 
  Country: None (occurrence: None)
  Receive Date: 20111227
  Receipt Date: 20111221
  Transmission Date: 20120403
  Serious: Yes (Other)
  Sender: FDA-Public Use
  Company Number: JP-B.I. PHARMACEUTICALS,INC./RIDGEFIELD-2011-BP-28589NB

PATIENT
  Age: 80 Year
  Sex: Male

DRUGS (13)
  1. PRADAXA [Suspect]
     Indication: ATRIAL FIBRILLATION
     Dosage: 220 MG
     Route: 048
  2. DILTIAZEM HCL [Concomitant]
     Route: 065
  3. ATELEC [Concomitant]
     Route: 065
  4. AMARYL [Concomitant]
     Route: 065
  5. SLOW-K [Concomitant]
     Route: 065
  6. DIGOXIN [Concomitant]
     Route: 065
  7. LASIX [Concomitant]
     Route: 065
  8. TORSEMIDE [Concomitant]
     Route: 065
  9. LANSOPRAZOLE [Concomitant]
     Route: 065
  10. FERROUS SULFATE TAB [Concomitant]
     Route: 065
  11. KALGUT [Concomitant]
     Route: 065
  12. LIPITOR [Concomitant]
     Route: 065
  13. ALLOPURINOL [Concomitant]
     Route: 065

REACTIONS (1)
  - RENAL FAILURE ACUTE [None]
